FAERS Safety Report 10170854 (Version 1)
Quarter: 2014Q2

REPORT INFORMATION
  Report Type: Spontaneous
  Country: US (occurrence: None)
  Receive Date: 20140513
  Receipt Date: 20140513
  Transmission Date: 20141212
  Serious: Yes (Hospitalization)
  Sender: FDA-Public Use
  Company Number: None

PATIENT
  Age: 44 Year
  Sex: Male
  Weight: 89.1 kg

DRUGS (1)
  1. DAPSONE [Suspect]
     Indication: PROPHYLAXIS AGAINST TRANSPLANT REJECTION
     Route: 048
     Dates: start: 20140327, end: 20140417

REACTIONS (5)
  - Diarrhoea [None]
  - Nausea [None]
  - Vomiting [None]
  - Glucose-6-phosphate dehydrogenase deficiency [None]
  - Haemolytic anaemia [None]
